FAERS Safety Report 5988343-1 (Version None)
Quarter: 2008Q4

REPORT INFORMATION
  Report Type: 
  Country: None (occurrence: None)
  Receive Date: 20081204
  Receipt Date: 20081120
  Transmission Date: 20090506
  Serious: Yes (Hospitalization)
  Sender: FDA-Public Use
  Company Number: KV200800448

PATIENT
  Age: 17 Year
  Sex: Female
  Weight: 45.4 kg

DRUGS (1)
  1. MORPHINE SULFATE [Suspect]
     Indication: TUMOUR PAIN
     Dosage: ONE-TWO TABS AS NEEDED FOR PAIN Q HOURS, ORAL
     Route: 048
     Dates: start: 20050101

REACTIONS (3)
  - DYSPNOEA [None]
  - PRODUCT QUALITY ISSUE [None]
  - PRURITUS GENERALISED [None]
